FAERS Safety Report 22301447 (Version 6)
Quarter: 2023Q2

REPORT INFORMATION
  Report Type: Report from Study
  Country: US (occurrence: US)
  Receive Date: 20230509
  Receipt Date: 20230609
  Transmission Date: 20230722
  Serious: Yes (Hospitalization)
  Sender: FDA-Public Use
  Company Number: US-BIOGEN-2023BI01203266

PATIENT
  Age: 49 Year
  Sex: Male

DRUGS (2)
  1. TYSABRI [Suspect]
     Active Substance: NATALIZUMAB
     Indication: Multiple sclerosis
     Route: 050
     Dates: start: 20111222, end: 20130313
  2. TYSABRI [Suspect]
     Active Substance: NATALIZUMAB
     Route: 050
     Dates: start: 20160324

REACTIONS (6)
  - Cystitis [Recovered/Resolved]
  - Fall [Recovered/Resolved]
  - Urinary tract infection [Unknown]
  - Abdominal pain upper [Unknown]
  - Aspiration [Unknown]
  - Bacterial infection [Unknown]

NARRATIVE: CASE EVENT DATE: 20230329
